FAERS Safety Report 19251979 (Version 2)
Quarter: 2021Q4

REPORT INFORMATION
  Report Type: Other
  Country: GB (occurrence: GB)
  Receive Date: 20210513
  Receipt Date: 20211125
  Transmission Date: 20220304
  Serious: Yes (Other)
  Sender: FDA-Public Use
  Company Number: None

PATIENT

DRUGS (3)
  1. MONTELUKAST SODIUM [Suspect]
     Active Substance: MONTELUKAST SODIUM
     Indication: Ill-defined disorder
     Dosage: 10 MILLIGRAM, QD
     Route: 048
     Dates: start: 20160115, end: 20160122
  2. MONTELUKAST SODIUM [Suspect]
     Active Substance: MONTELUKAST SODIUM
     Indication: Asthma
     Dosage: 10 MILLIGRAM QD
     Route: 048
     Dates: start: 20180207, end: 20180209
  3. PULMICORT TURBUHALER [Concomitant]
     Active Substance: BUDESONIDE
     Indication: Ill-defined disorder
     Dosage: UNK
     Route: 065

REACTIONS (7)
  - Adverse drug reaction [Recovered/Resolved with Sequelae]
  - Anxiety [Recovered/Resolved with Sequelae]
  - Depression [Recovered/Resolved with Sequelae]
  - Nightmare [Unknown]
  - Panic attack [Unknown]
  - Social anxiety disorder [Unknown]
  - Mood altered [Recovering/Resolving]

NARRATIVE: CASE EVENT DATE: 20180207
